FAERS Safety Report 8791925 (Version 1)
Quarter: 2012Q4

REPORT INFORMATION
  Report Type: 
  Country: US (occurrence: US)
  Receive Date: 20120918
  Receipt Date: 20120918
  Transmission Date: 20130627
  Serious: No
  Sender: FDA-Public Use
  Company Number: US-ASTRAZENECA-2012SE71045

PATIENT
  Age: 50 Year
  Sex: Male

DRUGS (1)
  1. TOPROL XL [Suspect]
     Route: 048

REACTIONS (1)
  - Stress [Unknown]
